FAERS Safety Report 4476706-5 (Version None)
Quarter: 2004Q4

REPORT INFORMATION
  Report Type: 
  Country: None (occurrence: None)
  Receive Date: 20041013
  Receipt Date: 20041001
  Transmission Date: 20050328
  Serious: Yes (Other)
  Sender: FDA-Public Use
  Company Number: 163-20785-04100138

PATIENT

DRUGS (2)
  1. THALOMID [Suspect]
     Indication: HEPATIC NEOPLASM MALIGNANT
     Dosage: 200 MG, QHS, WEEK 1 + 2, ORAL
     Route: 048
  2. DOXORUBICIN HCL [Suspect]
     Indication: HEPATIC NEOPLASM MALIGNANT
     Dosage: 100 MG IN THE AFFECTED LOBE

REACTIONS (5)
  - ALANINE AMINOTRANSFERASE INCREASED [None]
  - BLOOD ALKALINE PHOSPHATASE INCREASED [None]
  - FATIGUE [None]
  - HYPERGLYCAEMIA [None]
  - PANCREATITIS [None]
